FAERS Safety Report 5586448-0 (Version None)
Quarter: 2008Q1

REPORT INFORMATION
  Report Type: 
  Country: None (occurrence: None)
  Receive Date: 20080108
  Receipt Date: 20080108
  Transmission Date: 20080703
  Serious: Yes (Hospitalization)
  Sender: FDA-Public Use
  Company Number: None

PATIENT
  Age: 83 Year
  Sex: Male

DRUGS (1)
  1. SIMVASTATIN [Suspect]
     Indication: HYPERCHOLESTEROLAEMIA
     Dosage: 40MG HS OPHTHALMIC ^A NUMBER OF YEARS^
     Route: 047

REACTIONS (5)
  - ABASIA [None]
  - ASTHENIA [None]
  - HEPATIC ENZYME INCREASED [None]
  - RENAL FAILURE [None]
  - RHABDOMYOLYSIS [None]
